FAERS Safety Report 5252879-1 (Version None)
Quarter: 2007Q1

REPORT INFORMATION
  Report Type: 
  Country: None (occurrence: None)
  Receive Date: 20070301
  Receipt Date: 20070216
  Transmission Date: 20070707
  Serious: Yes (Hospitalization)
  Sender: FDA-Public Use
  Company Number: AU-AMGEN-US205206

PATIENT
  Sex: Female

DRUGS (7)
  1. PANITUMUMAB [Suspect]
     Indication: COLORECTAL CANCER
     Route: 042
     Dates: start: 20061130
  2. FOLINIC ACID [Suspect]
     Route: 042
  3. FLUOROURACIL [Suspect]
     Route: 042
  4. IRINOTECAN HCL [Suspect]
     Route: 042
  5. PERINDOPRIL ERBUMINE [Concomitant]
     Route: 048
     Dates: start: 20060301
  6. PANAMAX [Concomitant]
     Route: 048
     Dates: end: 20061226
  7. TRIMETHOPRIM [Concomitant]
     Route: 048
     Dates: start: 20061128, end: 20061208

REACTIONS (9)
  - BLOOD ELECTROLYTES ABNORMAL [None]
  - BLOOD MAGNESIUM DECREASED [None]
  - BLOOD PHOSPHORUS DECREASED [None]
  - BLOOD POTASSIUM DECREASED [None]
  - BLOOD SODIUM DECREASED [None]
  - DEHYDRATION [None]
  - DIARRHOEA [None]
  - PUBIC RAMI FRACTURE [None]
  - VOMITING [None]
